FAERS Safety Report 8373901-X (Version None)
Quarter: 2012Q2

REPORT INFORMATION
  Report Type: 
  Country: None (occurrence: None)
  Receive Date: 20120517
  Receipt Date: 20120511
  Transmission Date: 20120825
  Serious: Yes (Life-Threatening, Hospitalization)
  Sender: FDA-Public Use
  Company Number: DAV-AE-CLO-12-01

PATIENT
  Age: 77 Year
  Sex: Female

DRUGS (1)
  1. CLONIDINE [Suspect]
     Indication: BACK PAIN
     Dosage: 1200 MICROG/ML RATE: 250 MICROG/DAY, INADVERTENTLY INJECTED INTO THE SUBCUTANEOUS PUMP POCKET

REACTIONS (6)
  - HYPERTENSION [None]
  - WHEEZING [None]
  - DRUG ADMINISTERED AT INAPPROPRIATE SITE [None]
  - LEFT VENTRICULAR FAILURE [None]
  - FLUID OVERLOAD [None]
  - PULMONARY OEDEMA [None]
